FAERS Safety Report 14432371 (Version 1)
Quarter: 2018Q1

REPORT INFORMATION
  Report Type: Spontaneous
  Country: CA (occurrence: CA)
  Receive Date: 20180124
  Receipt Date: 20180124
  Transmission Date: 20180509
  Serious: Yes (Death)
  Sender: FDA-Public Use
  Company Number: CA-PFIZER INC-2016556302

PATIENT
  Age: 75 Year
  Sex: Female

DRUGS (12)
  1. PANTOPRAZOLE [Concomitant]
     Active Substance: PANTOPRAZOLE
     Dosage: 40 MG, 1X/DAY
  2. ASPIRIN. [Concomitant]
     Active Substance: ASPIRIN
     Dosage: 81 MG, UNK
  3. DEXAMETHASONE. [Concomitant]
     Active Substance: DEXAMETHASONE
     Dosage: 4 MG, 1/2 TAB
  4. AMLODIPINE [Concomitant]
     Active Substance: AMLODIPINE BESYLATE
     Dosage: 5 MG, 1/2 TAB 1X/DAY
  5. OXYNEO [Concomitant]
     Active Substance: OXYCODONE
     Dosage: 10 MG, 1 TAB 2X/DAY
  6. IBRANCE [Suspect]
     Active Substance: PALBOCICLIB
     Dosage: 125 MG, 2XDAILY (21 DAYS ON AND 7 DAYS OFF)
     Route: 048
     Dates: start: 20161206
  7. OXYCOCET [Concomitant]
     Active Substance: ACETAMINOPHEN\OXYCODONE HYDROCHLORIDE
     Dosage: 5 MG, 1-2 TABS EVERY 4 H AS NEEDED
  8. VITAMIN D /00107901/ [Concomitant]
     Active Substance: ERGOCALCIFEROL
     Dosage: 1000 IU, 1X/DAY
  9. IBRANCE [Suspect]
     Active Substance: PALBOCICLIB
     Indication: BREAST CANCER METASTATIC
     Dosage: 125 MG, DAILY (21 DAYS ON AND 7 DAYS OFF)
     Route: 048
     Dates: start: 20161126, end: 20161205
  10. IBRANCE [Suspect]
     Active Substance: PALBOCICLIB
     Dosage: 125 MG, CYCLIC, QD 21/28
     Route: 048
  11. FASLODEX [Concomitant]
     Active Substance: FULVESTRANT
     Dosage: UNK UNK, 1X/DAY
  12. HYDRO (UREA) [Suspect]
     Active Substance: UREA
     Dosage: 25MG 1/2 TAB ONCE DAILY

REACTIONS (4)
  - Product use in unapproved indication [Unknown]
  - Wrong dose [Unknown]
  - Death [Fatal]
  - Thermal burn [Unknown]
